FAERS Safety Report 9159423 (Version 1)
Quarter: 2013Q1

REPORT INFORMATION
  Report Type: Spontaneous
  Country: US (occurrence: None)
  Receive Date: 20130214
  Receipt Date: 20130214
  Transmission Date: 20140127
  Serious: Yes (Other)
  Sender: FDA-Public Use
  Company Number: AUR-APL-2012-05623

PATIENT
  Age: 52 Year
  Sex: Female
  Weight: 91.61 kg

DRUGS (4)
  1. DIVALPROEX (VALPROATE SEMISODIUM) [Suspect]
     Indication: CONVULSION
     Dates: start: 2011
  2. PHENYTOIN (PHENYTOIN) [Suspect]
     Indication: CONVULSION
     Dates: start: 20121219, end: 20121222
  3. NEURONTIN (GABAPENTIN) [Concomitant]
  4. PHENOBARBITAL (PHENOBARBITAL) [Concomitant]

REACTIONS (3)
  - Drug ineffective [None]
  - Convulsion [None]
  - Pruritus [None]
